FAERS Safety Report 22358397 (Version 1)
Quarter: 2023Q2

REPORT INFORMATION
  Report Type: Spontaneous
  Country: AU (occurrence: AU)
  Receive Date: 20230524
  Receipt Date: 20230524
  Transmission Date: 20230722
  Serious: Yes (Other)
  Sender: FDA-Public Use
  Company Number: AU-002147023-NVSC2023AU115665

PATIENT
  Age: 35 Year
  Sex: Female

DRUGS (8)
  1. ADALIMUMAB [Suspect]
     Active Substance: ADALIMUMAB
     Indication: Product used for unknown indication
     Dosage: 40 MG, Q2W
     Route: 058
     Dates: start: 202108
  2. OXYCODONE [Suspect]
     Active Substance: OXYCODONE
     Indication: Product used for unknown indication
     Dosage: 10 MG, Q4H
     Route: 065
  3. MIRTAZAPINE [Suspect]
     Active Substance: MIRTAZAPINE
     Indication: Product used for unknown indication
     Dosage: 45 MG (NOCTE)
     Route: 065
  4. PANTOPRAZOLE [Suspect]
     Active Substance: PANTOPRAZOLE
     Indication: Product used for unknown indication
     Dosage: 40 MG
     Route: 065
  5. CIPROFLOXACIN [Suspect]
     Active Substance: CIPROFLOXACIN
     Indication: Product used for unknown indication
     Dosage: UNK
     Route: 065
  6. ACETAMINOPHEN\CODEINE PHOSPHATE [Suspect]
     Active Substance: ACETAMINOPHEN\CODEINE PHOSPHATE
     Indication: Product used for unknown indication
     Dosage: 2 DOSAGE FORM, QID
     Route: 065
  7. LOPERAMIDE [Suspect]
     Active Substance: LOPERAMIDE
     Indication: Product used for unknown indication
     Dosage: UNK, PRN
     Route: 065
  8. VITAMIN B12 [Suspect]
     Active Substance: CYANOCOBALAMIN
     Indication: Product used for unknown indication
     Dosage: UNK
     Route: 065

REACTIONS (14)
  - Anal abscess [Unknown]
  - Small intestinal obstruction [Unknown]
  - Anal fistula [Unknown]
  - Female genital tract fistula [Unknown]
  - Diarrhoea [Unknown]
  - Discharge [Recovering/Resolving]
  - Proctalgia [Not Recovered/Not Resolved]
  - Colitis [Unknown]
  - Dysplasia [Unknown]
  - Dysmenorrhoea [Unknown]
  - Hernia [Unknown]
  - Gastrointestinal stoma output increased [Unknown]
  - Affective disorder [Unknown]
  - Stress [Unknown]

NARRATIVE: CASE EVENT DATE: 20210701
